FAERS Safety Report 8763116 (Version 3)
Quarter: 2012Q4

REPORT INFORMATION
  Report Type: 
  Country: US (occurrence: US)
  Receive Date: 20120831
  Receipt Date: 20121002
  Transmission Date: 20130627
  Serious: Yes (Hospitalization)
  Sender: FDA-Public Use
  Company Number: US-009507513-1208USA008697

PATIENT
  Sex: Female

DRUGS (3)
  1. PEGINTRON [Suspect]
     Dosage: 80 Microgram, qw
     Route: 058
     Dates: start: 20120619, end: 201208
  2. REBETOL [Suspect]
     Dosage: UNK
     Route: 048
     Dates: start: 20120619
  3. TELAPREVIR [Suspect]
     Dosage: UNK
     Dates: start: 20120619

REACTIONS (6)
  - Regurgitation [Unknown]
  - Abdominal pain upper [Unknown]
  - Pyrexia [Unknown]
  - Chills [Unknown]
  - Abdominal pain [Unknown]
  - Diarrhoea [Unknown]
